FAERS Safety Report 6568969-7 (Version None)
Quarter: 2010Q1

REPORT INFORMATION
  Report Type: 
  Country: None (occurrence: None)
  Receive Date: 20100127
  Receipt Date: 20100113
  Transmission Date: 20100710
  Serious: Yes (Other)
  Sender: FDA-Public Use
  Company Number: AUR-APL-2010-00216

PATIENT
  Age: 78 Year
  Sex: Male

DRUGS (2)
  1. METFORMIN HCL [Suspect]
     Indication: TYPE 2 DIABETES MELLITUS
     Dosage: 2 TABS - DAILY - ORAL
     Route: 048
     Dates: start: 20090501, end: 20091016
  2. CARDYL (ATORVASTATIN) FILM-COATED 20MG TABLET [Suspect]
     Indication: HYPERCHOLESTEROLAEMIA
     Dosage: 2 TABS - DAILY - ORAL
     Route: 048
     Dates: start: 20090501, end: 20091016

REACTIONS (5)
  - DERMATOMYOSITIS [None]
  - ERYTHEMA [None]
  - ICHTHYOSIS [None]
  - PHOTOSENSITIVITY REACTION [None]
  - PRURITUS GENERALISED [None]
